FAERS Safety Report 6664735-2 (Version None)
Quarter: 2010Q1

REPORT INFORMATION
  Report Type: 
  Country: None (occurrence: None)
  Receive Date: 20100330
  Receipt Date: 20091113
  Transmission Date: 20100710
  Serious: Yes (Other)
  Sender: FDA-Public Use
  Company Number: E2B_6054327

PATIENT
  Age: 18 Year
  Sex: Female
  Weight: 73 kg

DRUGS (4)
  1. LEVOTHYROXINE SODIUM [Suspect]
     Indication: THYROIDITIS CHRONIC
     Dosage: 100 MCG, 1 D, ORAL
     Route: 048
     Dates: start: 20050501, end: 20050501
  2. LEVOTHYROXINE SODIUM [Suspect]
     Indication: THYROIDITIS CHRONIC
     Dosage: 100 MCG, 1 D, ORAL
     Route: 048
     Dates: start: 20050501, end: 20050501
  3. LEVOTHYROXINE SODIUM [Suspect]
     Indication: THYROIDITIS CHRONIC
     Dosage: (0.1 MG, 1 D), ORAL
     Route: 048
     Dates: start: 20050401
  4. LEVOTHYROXINE SODIUM [Suspect]
     Indication: THYROIDITIS CHRONIC
     Dosage: (0.1 MG, 1D), ORL
     Route: 048
     Dates: start: 20050301, end: 20050301

REACTIONS (3)
  - HYPERSENSITIVITY [None]
  - URTICARIA [None]
  - VASCULITIS [None]
